FAERS Safety Report 6973667-1 (Version None)
Quarter: 2010Q3

REPORT INFORMATION
  Report Type: 
  Country: None (occurrence: None)
  Receive Date: 20100907
  Receipt Date: 20100823
  Transmission Date: 20110219
  Serious: Yes (Hospitalization)
  Sender: FDA-Public Use
  Company Number: B0672708A

PATIENT
  Age: 83 Year
  Sex: Female

DRUGS (4)
  1. FONDAPARINUX SODIUM [Suspect]
     Indication: COAGULOPATHY
     Dosage: 7.5 MG/ PER DAY/ SUBCUTANEOUS
     Route: 058
  2. PIRIBEDIL [Concomitant]
  3. BROMAZEPAM [Concomitant]
  4. FRUSEMIDE [Concomitant]

REACTIONS (8)
  - ANAEMIA [None]
  - HAEMATOMA [None]
  - HYPOAESTHESIA [None]
  - HYPOKALAEMIA [None]
  - MONOPARESIS [None]
  - NEUTROPHIL COUNT INCREASED [None]
  - PAIN [None]
  - VENOUS THROMBOSIS LIMB [None]
